FAERS Safety Report 9507883 (Version 1)
Quarter: 2013Q3

REPORT INFORMATION
  Report Type: Spontaneous
  Country: US (occurrence: US)
  Receive Date: 20130909
  Receipt Date: 20130909
  Transmission Date: 20140515
  Serious: Yes (Other)
  Sender: FDA-Public Use
  Company Number: US-PFIZER INC-2013257917

PATIENT
  Age: 50 Year
  Sex: Female
  Weight: 88.44 kg

DRUGS (16)
  1. LYRICA [Suspect]
     Indication: FIBROMYALGIA
     Dosage: 150 MG, 2X/DAY
  2. LYRICA [Suspect]
     Indication: INTERVERTEBRAL DISC DISORDER
  3. LYRICA [Suspect]
     Indication: INTERVERTEBRAL DISC DISORDER
  4. LYRICA [Suspect]
     Indication: ARTHRALGIA
  5. LYRICA [Suspect]
     Indication: MUSCULOSKELETAL PAIN
  6. LYRICA [Suspect]
     Indication: ARTHRALGIA
  7. ATENOLOL [Suspect]
     Indication: HYPERTENSION
     Dosage: 75 MG, 1X/DAY
  8. DONEPEZIL [Concomitant]
     Dosage: 10 MG, 1X/DAY
  9. OXYBUTYNIN [Concomitant]
     Dosage: 5 MG, UNK
  10. HYDROCODONE W/ACETAMINOPHEN [Concomitant]
     Dosage: 10/325 MG, AS NEEDED
  11. DIAZEPAM [Concomitant]
     Dosage: 10 MG, AS NEEDED
  12. CYCLOBENZAPRINE [Concomitant]
     Dosage: 10 MG, AS NEEDED
  13. COMPAZINE [Concomitant]
     Dosage: UNK
  14. PROTONIX [Concomitant]
     Dosage: 40 MG, 2X/DAY
  15. HYOSCYAMINE [Concomitant]
     Dosage: 0.375 MG, 2X/DAY
  16. IMITREX [Concomitant]
     Indication: MIGRAINE
     Dosage: 20 MG, UNK
     Route: 045

REACTIONS (7)
  - Renal failure [Unknown]
  - Blood creatinine increased [Unknown]
  - Glomerular filtration rate abnormal [Unknown]
  - Cerebral disorder [Unknown]
  - Arthralgia [Unknown]
  - Weight abnormal [Unknown]
  - Musculoskeletal pain [Unknown]
